FAERS Safety Report 7778118-5 (Version None)
Quarter: 2011Q3

REPORT INFORMATION
  Report Type: 
  Country: None (occurrence: None)
  Receive Date: 20110926
  Receipt Date: 20110920
  Transmission Date: 20111222
  Serious: No
  Sender: FDA-Public Use
  Company Number: US-PFIZER INC-2011202093

PATIENT
  Sex: Female

DRUGS (3)
  1. DEPO-PROVERA [Suspect]
     Indication: CONTRACEPTION
     Dosage: 150 MG, EVERY 12-14 WEEKS
     Route: 030
     Dates: start: 20101108
  2. DEPO-PROVERA [Suspect]
     Dosage: 150 MG, EVERY 12-14 WEEKS
     Route: 030
     Dates: start: 20110211
  3. DEPO-PROVERA [Suspect]
     Dosage: 150 MG, EVERY 12-14 WEEKS
     Route: 030
     Dates: start: 20110513

REACTIONS (2)
  - UNINTENDED PREGNANCY [None]
  - POOR QUALITY DRUG ADMINISTERED [None]
